FAERS Safety Report 11223214 (Version 1)
Quarter: 2015Q2

REPORT INFORMATION
  Report Type: Spontaneous
  Country: US (occurrence: US)
  Receive Date: 20150626
  Receipt Date: 20150626
  Transmission Date: 20150821
  Serious: Yes (Other)
  Sender: FDA-Public Use
  Company Number: US-BAXTER-2015BAX034655

PATIENT
  Age: 34 Year
  Sex: Female

DRUGS (18)
  1. METHYLPREDNISOLONE. [Suspect]
     Active Substance: METHYLPREDNISOLONE
     Indication: PRODUCT USED FOR UNKNOWN INDICATION
     Route: 065
  2. BREVIBLOC [Suspect]
     Active Substance: ESMOLOL HYDROCHLORIDE
     Indication: BLOOD PRESSURE MANAGEMENT
     Route: 042
  3. MIDAZOLAM [Suspect]
     Active Substance: MIDAZOLAM\MIDAZOLAM HYDROCHLORIDE
     Indication: PRODUCT USED FOR UNKNOWN INDICATION
     Route: 065
  4. KETOROLAC [Suspect]
     Active Substance: KETOROLAC\KETOROLAC TROMETHAMINE
     Indication: PRODUCT USED FOR UNKNOWN INDICATION
     Route: 065
  5. ONDANSETRON [Suspect]
     Active Substance: ONDANSETRON
     Indication: PRODUCT USED FOR UNKNOWN INDICATION
     Route: 065
  6. SCOPOLAMINE [Suspect]
     Active Substance: SCOPOLAMINE
     Indication: PRODUCT USED FOR UNKNOWN INDICATION
     Route: 065
  7. METHYLPREDNISOLONE. [Suspect]
     Active Substance: METHYLPREDNISOLONE
     Dosage: REDOSED EVERY 4 HOURS FOR 24 HOURS
     Route: 065
  8. PROPOFOL. [Suspect]
     Active Substance: PROPOFOL
     Indication: INDUCTION OF ANAESTHESIA
     Route: 065
  9. REMIFENTANIL [Suspect]
     Active Substance: REMIFENTANIL
     Indication: MAINTENANCE OF ANAESTHESIA
     Route: 042
  10. ERYTHROMYCIN. [Suspect]
     Active Substance: ERYTHROMYCIN
     Dosage: LOW DOSE, POSTOPERATIVELY
     Route: 065
  11. PROPOFOL. [Suspect]
     Active Substance: PROPOFOL
     Indication: MAINTENANCE OF ANAESTHESIA
     Route: 042
  12. CISATRACURIUM [Suspect]
     Active Substance: CISATRACURIUM
     Indication: ENDOTRACHEAL INTUBATION
     Route: 065
  13. XYLOMETAZOLINE [Suspect]
     Active Substance: XYLOMETAZOLINE
     Indication: ENDOTRACHEAL INTUBATION
     Route: 065
  14. ERYTHROMYCIN. [Suspect]
     Active Substance: ERYTHROMYCIN
     Indication: GASTROOESOPHAGEAL REFLUX PROPHYLAXIS
     Dosage: LOW DOSE
     Route: 065
  15. FENTANYL. [Suspect]
     Active Substance: FENTANYL
     Indication: PRODUCT USED FOR UNKNOWN INDICATION
     Route: 065
  16. LIDOCAINE IN EPINEPHRINE [Suspect]
     Active Substance: EPINEPHRINE\LIDOCAINE
     Indication: INFILTRATION ANAESTHESIA
     Dosage: TWO PERCENT LIDOCAINE WITH 1: 100000 EPINEPHRINE
     Route: 065
  17. LIDOCAINE. [Suspect]
     Active Substance: LIDOCAINE
     Indication: ENDOTRACHEAL INTUBATION
     Route: 065
  18. PHENYLEPHRINE [Suspect]
     Active Substance: PHENYLEPHRINE\PHENYLEPHRINE HYDROCHLORIDE
     Indication: PRODUCT USED FOR UNKNOWN INDICATION
     Route: 065

REACTIONS (6)
  - Trigeminal nerve disorder [Unknown]
  - Headache [Recovered/Resolved]
  - Post procedural complication [Unknown]
  - Mydriasis [Unknown]
  - Nausea [Recovered/Resolved]
  - Pupils unequal [Recovered/Resolved]
